FAERS Safety Report 4718543-X (Version None)
Quarter: 2005Q3

REPORT INFORMATION
  Report Type: 
  Country: None (occurrence: None)
  Receive Date: 20050720
  Receipt Date: 20000508
  Transmission Date: 20060218
  Serious: Yes (Other)
  Sender: FDA-Public Use
  Company Number: BE-SANOFI-SYNTHELABO-N122176

PATIENT
  Sex: Male
  Weight: 89 kg

DRUGS (12)
  1. KAYEXALATE [Suspect]
     Indication: HYPERKALAEMIA
     Route: 048
     Dates: start: 20000419, end: 20000427
  2. KAYEXALATE [Interacting]
     Route: 048
     Dates: start: 20000101
  3. MANIPREX [Interacting]
     Indication: BIPOLAR DISORDER
     Dosage: 350 MG
     Route: 048
     Dates: start: 19810101, end: 20000101
  4. MANIPREX [Interacting]
     Dosage: 450 MG
     Route: 048
     Dates: start: 20000101, end: 20010101
  5. DEPAKENE [Concomitant]
     Indication: BIPOLAR DISORDER
     Dosage: 1800 MG
     Route: 048
     Dates: start: 19840101
  6. AMILORIDE HCL [Concomitant]
     Indication: DIABETES MELLITUS
     Dosage: 20 MG
     Route: 048
     Dates: start: 19920101, end: 20000101
  7. HYGROTON [Concomitant]
     Indication: DRUG USE FOR UNKNOWN INDICATION
     Dosage: 50 MG
     Route: 048
     Dates: start: 19920101
  8. HALDOL DECANOAS [Concomitant]
     Indication: BIPOLAR DISORDER
     Dosage: 100 MG
     Route: 030
     Dates: start: 19900101, end: 20010101
  9. KEMADRIN [Concomitant]
     Dosage: UNK
     Route: 048
  10. DOMINAL [Concomitant]
     Indication: DRUG USE FOR UNKNOWN INDICATION
     Route: 048
     Dates: start: 20000101
  11. XANAX [Concomitant]
     Indication: DRUG USE FOR UNKNOWN INDICATION
     Route: 048
     Dates: start: 20000101
  12. MODURETIC 5-50 [Concomitant]
     Indication: DRUG USE FOR UNKNOWN INDICATION
     Dosage: 20 MG
     Route: 065
     Dates: start: 20000101

REACTIONS (3)
  - ANTIPSYCHOTIC DRUG LEVEL BELOW THERAPEUTIC [None]
  - DRUG INTERACTION INHIBITION [None]
  - HYPOMANIA [None]
